FAERS Safety Report 9298149 (Version 2)
Quarter: 2013Q3

REPORT INFORMATION
  Report Type: Report from Study
  Country: FR (occurrence: FR)
  Receive Date: 20130520
  Receipt Date: 20130722
  Transmission Date: 20140515
  Serious: Yes (Hospitalization)
  Sender: FDA-Public Use
  Company Number: FR-BRISTOL-MYERS SQUIBB COMPANY-18867184

PATIENT
  Age: 27 Year
  Sex: Male

DRUGS (2)
  1. IPILIMUMAB [Suspect]
     Indication: METASTATIC MALIGNANT MELANOMA
     Route: 042
     Dates: start: 20130405, end: 20130405
  2. TARDYFERON [Concomitant]
     Route: 048
     Dates: start: 20130304

REACTIONS (2)
  - Colitis [Recovered/Resolved with Sequelae]
  - Diarrhoea [Not Recovered/Not Resolved]
